FAERS Safety Report 4990826-8 (Version None)
Quarter: 2006Q1

REPORT INFORMATION
  Report Type: 
  Country: None (occurrence: None)
  Receive Date: 20060314
  Receipt Date: 20051116
  Transmission Date: 20060701
  Serious: No
  Sender: FDA-Public Use
  Company Number: 2005-02209

PATIENT
  Age: 64 Year
  Sex: Female
  Weight: 67.6 kg

DRUGS (4)
  1. VELCADE [Suspect]
     Indication: MULTIPLE MYELOMA
     Dosage: 1.30 MG/M2, 2/WEEK, INTRAVENOUS
     Route: 042
     Dates: start: 20040802, end: 20040916
  2. HYDROCHLOROTHIAZIDE [Concomitant]
  3. PREMARIN [Concomitant]
  4. TOPROL-XL [Concomitant]

REACTIONS (2)
  - NAUSEA [None]
  - VOMITING [None]
